FAERS Safety Report 6383792-4 (Version None)
Quarter: 2009Q3

REPORT INFORMATION
  Report Type: 
  Country: None (occurrence: None)
  Receive Date: 20090929
  Receipt Date: 20090929
  Transmission Date: 20100115
  Serious: No
  Sender: FDA-Public Use
  Company Number: None

PATIENT
  Age: 56 Year
  Sex: Male
  Weight: 74.8435 kg

DRUGS (1)
  1. NASONEX [Suspect]
     Indication: SINUS CONGESTION
     Dosage: 2 SPRAY PER NOSTRAL ONCE A DAY NASAL
     Route: 045
     Dates: start: 20090110, end: 20090320

REACTIONS (3)
  - DYSGEUSIA [None]
  - HIGH DENSITY LIPOPROTEIN INCREASED [None]
  - HYPOSMIA [None]
